FAERS Safety Report 25614660 (Version 1)
Quarter: 2025Q3

REPORT INFORMATION
  Report Type: Report from Study
  Country: US (occurrence: US)
  Receive Date: 20250729
  Receipt Date: 20250729
  Transmission Date: 20251020
  Serious: No
  Sender: SANDOZ
  Company Number: US-SANDOZ-SDZ2025US053289

PATIENT
  Age: 13 Year
  Sex: Male

DRUGS (2)
  1. OMNITROPE [Suspect]
     Active Substance: SOMATROPIN
     Indication: Short stature
     Dosage: 1.4 MG, QD
     Route: 058
     Dates: start: 20250721, end: 20250724
  2. OMNITROPE [Suspect]
     Active Substance: SOMATROPIN
     Indication: Short stature
     Dosage: 1.4 MG, QD
     Route: 058
     Dates: start: 20250721, end: 20250724

REACTIONS (4)
  - Injection site pain [Not Recovered/Not Resolved]
  - Exposure via skin contact [Unknown]
  - Incorrect dose administered by device [Unknown]
  - Needle issue [Unknown]

NARRATIVE: CASE EVENT DATE: 20250721
